FAERS Safety Report 18013406 (Version 1)
Quarter: 2020Q3

REPORT INFORMATION
  Report Type: Spontaneous
  Country: US (occurrence: US)
  Receive Date: 20200711
  Receipt Date: 20200711
  Transmission Date: 20201103
  Serious: No
  Sender: FDA-Public Use
  Company Number: None

PATIENT
  Sex: Male

DRUGS (1)
  1. HUMIRA [Suspect]
     Active Substance: ADALIMUMAB
     Indication: PSORIASIS
     Dosage: ?          OTHER STRENGTH:40MG/0.4ML;OTHER DOSE:40MG/0.4ML;?FREQUENCY: EVERY 2 WEEKS?
     Route: 058
     Dates: start: 201806

REACTIONS (1)
  - Systemic lupus erythematosus [None]
